FAERS Safety Report 18483806 (Version 1)
Quarter: 2020Q4

REPORT INFORMATION
  Report Type: Spontaneous
  Country: DE (occurrence: DE)
  Receive Date: 20201109
  Receipt Date: 20201109
  Transmission Date: 20210114
  Serious: Yes (Hospitalization, Other)
  Sender: FDA-Public Use
  Company Number: DE-BAXTER-2020BAX022230

PATIENT
  Age: 50 Year
  Sex: Female

DRUGS (1)
  1. ENDOXAN 1G [Suspect]
     Active Substance: CYCLOPHOSPHAMIDE
     Indication: CHEMOTHERAPY
     Route: 065

REACTIONS (1)
  - Dysuria [Unknown]

NARRATIVE: CASE EVENT DATE: 20200729
